FAERS Safety Report 5292595-3 (Version None)
Quarter: 2007Q2

REPORT INFORMATION
  Report Type: 
  Country: None (occurrence: None)
  Receive Date: 20070410
  Receipt Date: 20070403
  Transmission Date: 20071010
  Serious: Yes (Other)
  Sender: FDA-Public Use
  Company Number: JP-GENENTECH-233627

PATIENT

DRUGS (4)
  1. ACTIVASE [Suspect]
     Indication: CEREBRAL INFARCTION
     Dosage: 19 MIU, SINGLE
     Route: 042
     Dates: start: 20061125, end: 20061125
  2. RADICUT [Suspect]
     Indication: CEREBRAL INFARCTION
     Dosage: 60 MG, UNK
     Dates: start: 20061125, end: 20061130
  3. GLYCEOL [Concomitant]
     Indication: DRUG USE FOR UNKNOWN INDICATION
     Dates: start: 20061125, end: 20061207
  4. TAGAMET [Concomitant]
     Indication: DRUG USE FOR UNKNOWN INDICATION
     Dates: start: 20061125, end: 20061215

REACTIONS (1)
  - LIVER DISORDER [None]
